FAERS Safety Report 6710712-2 (Version None)
Quarter: 2010Q2

REPORT INFORMATION
  Report Type: 
  Country: None (occurrence: None)
  Receive Date: 20100504
  Receipt Date: 20100504
  Transmission Date: 20101027
  Serious: Yes (Other)
  Sender: FDA-Public Use
  Company Number: None

PATIENT
  Age: 13 Month
  Sex: Female
  Weight: 9.9791 kg

DRUGS (1)
  1. MOTRIN [Suspect]

REACTIONS (4)
  - ABDOMINAL PAIN UPPER [None]
  - MUSCULOSKELETAL STIFFNESS [None]
  - PRODUCT QUALITY ISSUE [None]
  - SCREAMING [None]
